FAERS Safety Report 17431570 (Version 8)
Quarter: 2022Q2

REPORT INFORMATION
  Report Type: Spontaneous
  Country: GB (occurrence: GB)
  Receive Date: 20200218
  Receipt Date: 20220523
  Transmission Date: 20220721
  Serious: Yes (Hospitalization, Disabling, Other)
  Sender: FDA-Public Use
  Company Number: GB-KYOWAKIRIN-2019BKK019380

PATIENT
  Age: 22 Year
  Sex: Male

DRUGS (35)
  1. FENTANYL [Suspect]
     Active Substance: FENTANYL
     Indication: Status epilepticus
     Dosage: 300 MICROGRAM/KILOGRAM (UP TO 300UG/KG/H)
     Route: 040
  2. FENTANYL [Suspect]
     Active Substance: FENTANYL
     Indication: Sedation
  3. KETAMINE [Suspect]
     Active Substance: KETAMINE
     Indication: Status epilepticus
     Dosage: TITRATED UP TO 6 MG/KG/HR
     Route: 065
  4. KETAMINE [Suspect]
     Active Substance: KETAMINE
     Dosage: 6 MILLIGRAM/KILOGRAM, HS (TITRATED UP TO 6 MG/KG/HR)
  5. KETAMINE [Suspect]
     Active Substance: KETAMINE
     Dosage: 6 MILLIGRAM/KILOGRAM, 1 HOUR
  6. THIOPENTAL SODIUM [Suspect]
     Active Substance: THIOPENTAL SODIUM
     Indication: Status epilepticus
     Dosage: UP TO 7 MG/KG/HR
     Route: 042
  7. THIOPENTAL SODIUM [Suspect]
     Active Substance: THIOPENTAL SODIUM
     Indication: Epilepsy
  8. MIDAZOLAM [Suspect]
     Active Substance: MIDAZOLAM
     Indication: Status epilepticus
     Dosage: 20 MILLIGRAM, QH (UP TO 20 MG/HR)
     Route: 065
  9. MIDAZOLAM [Suspect]
     Active Substance: MIDAZOLAM
     Indication: Seizure
  10. PROPOFOL [Suspect]
     Active Substance: PROPOFOL
     Indication: Status epilepticus
     Dosage: 5 MILLIGRAM/KILOGRAM (UPTO 5 MG/KG/HR)
     Route: 040
  11. PROPOFOL [Suspect]
     Active Substance: PROPOFOL
     Indication: Sedation
  12. PROPOFOL [Suspect]
     Active Substance: PROPOFOL
     Indication: Sedative therapy
  13. PHENOBARBITAL [Suspect]
     Active Substance: PHENOBARBITAL
     Indication: Status epilepticus
     Dosage: UNK
     Route: 065
  14. REMIFENTANIL [Suspect]
     Active Substance: REMIFENTANIL
     Indication: Sedation
     Dosage: UNK
     Route: 065
  15. CEFTRIAXONE [Suspect]
     Active Substance: CEFTRIAXONE
     Indication: Evidence based treatment
     Dosage: UNK
     Route: 042
  16. ACYCLOVIR [Suspect]
     Active Substance: ACYCLOVIR
     Indication: Evidence based treatment
     Dosage: UNK
     Route: 042
  17. TOPIRAMATE [Suspect]
     Active Substance: TOPIRAMATE
     Indication: Status epilepticus
     Dosage: UNK
     Route: 065
  18. PROPOFOL [Suspect]
     Active Substance: PROPOFOL
     Indication: Status epilepticus
     Dosage: 5 MILLIGRAM/KILOGRAM
     Route: 065
  19. ACYCLOVIR [Suspect]
     Active Substance: ACYCLOVIR
     Indication: Evidence based treatment
     Dosage: UNK
     Route: 065
  20. THIOPENTAL SODIUM [Suspect]
     Active Substance: THIOPENTAL SODIUM
     Indication: Status epilepticus
     Dosage: 5 MILLIGRAM
     Route: 065
  21. LEVETIRACETAM [Concomitant]
     Active Substance: LEVETIRACETAM
     Indication: Epilepsy
     Dosage: UNK
     Route: 065
  22. LEVETIRACETAM [Concomitant]
     Active Substance: LEVETIRACETAM
     Indication: Status epilepticus
  23. LACOSAMIDE [Concomitant]
     Active Substance: LACOSAMIDE
     Indication: Status epilepticus
     Dosage: UNKNOWN
     Route: 065
  24. CLONAZEPAM [Concomitant]
     Active Substance: CLONAZEPAM
     Indication: Status epilepticus
     Dosage: UNK
     Route: 065
  25. TOPIRAMATE [Concomitant]
     Active Substance: TOPIRAMATE
     Indication: Status epilepticus
     Dosage: UNK
     Route: 042
  26. LORAZEPAM [Concomitant]
     Active Substance: LORAZEPAM
     Indication: Epilepsy
     Dosage: UNK
     Route: 065
  27. LORAZEPAM [Concomitant]
     Active Substance: LORAZEPAM
     Indication: Paroxysmal sympathetic hyperactivity
  28. METHYLPREDNISOLONE [Concomitant]
     Active Substance: METHYLPREDNISOLONE
     Indication: Status epilepticus
     Dosage: 1 GRAM, QD (TWO SEPARATE PULSES IV METHYLPREDNISOLONE (FOR 5 DAYS)
     Route: 042
  29. PERAMPANEL [Concomitant]
     Active Substance: PERAMPANEL
     Indication: Status epilepticus
     Dosage: UP-TITRATED TO 14 MG DAILY
     Route: 065
  30. PERAMPANEL [Concomitant]
     Active Substance: PERAMPANEL
     Indication: Epilepsy
     Dosage: ADDED ON DAY 142 SLOWLY UP-TITRATED
  31. VALPROATE SODIUM [Concomitant]
     Active Substance: VALPROATE SODIUM
     Indication: Epilepsy
     Dosage: UNK
  32. VALPROATE SODIUM [Concomitant]
     Active Substance: VALPROATE SODIUM
     Indication: Status epilepticus
  33. PHENYTOIN [Concomitant]
     Active Substance: PHENYTOIN
     Indication: Epilepsy
     Dosage: UNK
     Route: 065
  34. PHENYTOIN [Concomitant]
     Active Substance: PHENYTOIN
     Indication: Status epilepticus
  35. CLOBAZAM [Concomitant]
     Active Substance: CLOBAZAM
     Indication: Status epilepticus
     Dosage: UNK
     Route: 065

REACTIONS (33)
  - Behaviour disorder [Unknown]
  - Intensive care unit acquired weakness [Unknown]
  - Deep vein thrombosis [Unknown]
  - Hypothyroidism [Unknown]
  - Partial seizures [Not Recovered/Not Resolved]
  - Weight decreased [Unknown]
  - Acute lung injury [Unknown]
  - Hypercalcaemia [Unknown]
  - Thrombophlebitis [Unknown]
  - Decubitus ulcer [Unknown]
  - Muscle contracture [Unknown]
  - Ileus [Unknown]
  - Abdominal compartment syndrome [Unknown]
  - Liver function test abnormal [Unknown]
  - Anaemia [Unknown]
  - Acute kidney injury [Unknown]
  - Coagulopathy [Unknown]
  - Fungal infection [Unknown]
  - Haematuria [Unknown]
  - Hypernatraemia [Unknown]
  - Cognitive disorder [Unknown]
  - Memory impairment [Unknown]
  - Infection [Unknown]
  - Pyrexia [Unknown]
  - Hypotension [Unknown]
  - Drug hypersensitivity [Unknown]
  - Bradycardia [Unknown]
  - Tachycardia [Unknown]
  - Rash [Unknown]
  - Haematuria traumatic [Unknown]
  - Off label use [Unknown]
  - Product use in unapproved indication [Unknown]
  - Intentional product use issue [Unknown]
